FAERS Safety Report 4711395-3 (Version None)
Quarter: 2005Q3

REPORT INFORMATION
  Report Type: 
  Country: None (occurrence: None)
  Receive Date: 20050708
  Receipt Date: 20050621
  Transmission Date: 20060218
  Serious: No
  Sender: FDA-Public Use
  Company Number: USA0506101300

PATIENT
  Age: 17 Year
  Sex: Male
  Weight: 91 kg

DRUGS (1)
  1. STRATTERA [Suspect]

REACTIONS (1)
  - ALANINE AMINOTRANSFERASE INCREASED [None]
